FAERS Safety Report 18009183 (Version 1)
Quarter: 2020Q3

REPORT INFORMATION
  Report Type: Spontaneous
  Country: US (occurrence: US)
  Receive Date: 20200710
  Receipt Date: 20200710
  Transmission Date: 20201103
  Serious: Yes (Other)
  Sender: FDA-Public Use
  Company Number: US-SAOL THERAPEUTICS-2020SAO00139

PATIENT
  Sex: Female

DRUGS (1)
  1. LIORESAL [Suspect]
     Active Substance: BACLOFEN
     Dosage: UNK UNK, \DAY
     Route: 037

REACTIONS (3)
  - Overdose [Recovered/Resolved]
  - Device physical property issue [Recovered/Resolved]
  - Drug withdrawal syndrome [Recovered/Resolved]
